FAERS Safety Report 6784507-8 (Version None)
Quarter: 2010Q2

REPORT INFORMATION
  Report Type: 
  Country: None (occurrence: None)
  Receive Date: 20100622
  Receipt Date: 20100618
  Transmission Date: 20101027
  Serious: Yes (Death)
  Sender: FDA-Public Use
  Company Number: FR-WYE-G06293910

PATIENT
  Sex: Male
  Weight: 85 kg

DRUGS (8)
  1. GEMTUZUMAB OZOGAMICIN [Suspect]
     Indication: ACUTE MYELOID LEUKAEMIA
     Dosage: 5 MG PER DAY ON DAY 1, DAY 4 AND DAY 7
     Route: 042
     Dates: start: 20100512, end: 20100518
  2. CYTARABINE [Concomitant]
     Indication: ACUTE MYELOID LEUKAEMIA
     Route: 042
     Dates: start: 20100512, end: 20100519
  3. VFEND [Concomitant]
     Dosage: 400 MG TOTAL DAILY
     Route: 042
     Dates: start: 20100528, end: 20100608
  4. VFEND [Concomitant]
     Dosage: 400 MG TOTAL DAILY
     Route: 048
     Dates: start: 20100608
  5. AXEPIM [Concomitant]
     Route: 042
     Dates: start: 20100603, end: 20100606
  6. NEXIUM [Concomitant]
     Dosage: 40 MG TOTAL DAILY
     Route: 048
     Dates: start: 20100606
  7. DAUNORUBICIN HCL [Concomitant]
     Indication: ACUTE MYELOID LEUKAEMIA
     Route: 042
     Dates: start: 20100512, end: 20100514
  8. HYDREA [Concomitant]
     Route: 042
     Dates: start: 20100512, end: 20100512

REACTIONS (1)
  - DEATH [None]
